FAERS Safety Report 5370945-7 (Version None)
Quarter: 2007Q2

REPORT INFORMATION
  Report Type: 
  Country: None (occurrence: None)
  Receive Date: 20070626
  Receipt Date: 20070620
  Transmission Date: 20071010
  Serious: Yes (Congenital Anomaly, Other)
  Sender: FDA-Public Use
  Company Number: US-GILEAD-2007-0012399

PATIENT
  Sex: Male

DRUGS (3)
  1. ATRIPLA [Suspect]
     Route: 064
     Dates: start: 20061128
  2. ZIDOVUDINE [Concomitant]
     Route: 064
     Dates: start: 20070605, end: 20070605
  3. ZIDOVUDINE [Concomitant]
     Route: 064
     Dates: start: 20070605, end: 20070605

REACTIONS (1)
  - CONGENITAL CHOROID PLEXUS CYST [None]
